FAERS Safety Report 4618854-2 (Version None)
Quarter: 2005Q1

REPORT INFORMATION
  Report Type: 
  Country: None (occurrence: None)
  Receive Date: 20050323
  Receipt Date: 20050315
  Transmission Date: 20050727
  Serious: Yes (Hospitalization, Other)
  Sender: FDA-Public Use
  Company Number: 2005017496

PATIENT
  Age: 53 Year
  Sex: Male

DRUGS (5)
  1. LIPITOR [Suspect]
     Indication: HYPERLIPIDAEMIA
     Dosage: 10 MG (10 MG, 1 IN 1 D), ORAL
     Route: 048
     Dates: start: 20000101, end: 20041201
  2. INSULIN [Concomitant]
  3. RAMIPRIL [Concomitant]
  4. METOPROLOL SUCCINATE [Concomitant]
  5. FOLIC ACID [Concomitant]

REACTIONS (5)
  - ARTHRALGIA [None]
  - DERMATOMYOSITIS [None]
  - FATIGUE [None]
  - FEELING ABNORMAL [None]
  - POLYMYOSITIS [None]
